FAERS Safety Report 5547195-4 (Version None)
Quarter: 2007Q4

REPORT INFORMATION
  Report Type: 
  Country: None (occurrence: None)
  Receive Date: 20071211
  Receipt Date: 20070219
  Transmission Date: 20080405
  Serious: No
  Sender: FDA-Public Use
  Company Number: US-AMGEN-KDL211907

PATIENT
  Sex: Male

DRUGS (2)
  1. ENBREL [Suspect]
     Indication: RHEUMATOID ARTHRITIS
     Route: 058
     Dates: start: 20060306
  2. PLAQUENIL [Concomitant]
     Route: 048
     Dates: start: 20050101

REACTIONS (5)
  - ERYTHEMA [None]
  - FEELING HOT [None]
  - INCISION SITE PAIN [None]
  - PRURITUS [None]
  - SWELLING [None]
